FAERS Safety Report 4472462-5 (Version None)
Quarter: 2004Q4

REPORT INFORMATION
  Report Type: 
  Country: None (occurrence: None)
  Receive Date: 20041007
  Receipt Date: 20040930
  Transmission Date: 20050328
  Serious: Yes (Death, Hospitalization)
  Sender: FDA-Public Use
  Company Number: HQWYE739531AUG04

PATIENT
  Age: 84 Year
  Sex: Male
  Weight: 88.08 kg

DRUGS (1)
  1. MYLOTARG [Suspect]
     Indication: ACUTE MYELOID LEUKAEMIA
     Dosage: 18 MG 1X PER 1 DAY, INTRAVENOUS
     Route: 042
     Dates: start: 20040813, end: 20040813

REACTIONS (1)
  - HAEMATEMESIS [None]
